FAERS Safety Report 19686468 (Version 1)
Quarter: 2021Q3

REPORT INFORMATION
  Report Type: Spontaneous
  Country: JP (occurrence: JP)
  Receive Date: 20210811
  Receipt Date: 20210811
  Transmission Date: 20211014
  Serious: Yes (Death)
  Sender: FDA-Public Use
  Company Number: JP-PFIZER INC-202100995790

PATIENT
  Age: 79 Year
  Sex: Male
  Weight: 60 kg

DRUGS (13)
  1. RITUXIMAB. [Concomitant]
     Active Substance: RITUXIMAB
     Indication: DIFFUSE LARGE B-CELL LYMPHOMA
     Dosage: CYCLIC
     Dates: start: 20200916
  2. ADALAT CC [Concomitant]
     Active Substance: NIFEDIPINE
  3. PROCARBAZINE [Concomitant]
     Active Substance: PROCARBAZINE
     Indication: DIFFUSE LARGE B-CELL LYMPHOMA
     Dosage: CYCLIC
     Dates: start: 20200916
  4. ONCOVIN [Concomitant]
     Active Substance: VINCRISTINE SULFATE
     Indication: DIFFUSE LARGE B-CELL LYMPHOMA
     Dosage: CYCLIC
     Dates: start: 20200916
  5. PRONON [Concomitant]
     Active Substance: PROPAFENONE
  6. FEBURIC [Concomitant]
     Active Substance: FEBUXOSTAT
  7. CIBENOL [Concomitant]
     Active Substance: CIFENLINE
  8. CERCINE [Concomitant]
     Active Substance: DIAZEPAM
  9. LIPIDIL [Concomitant]
     Active Substance: FENOFIBRATE
  10. METHOTREXATE. [Suspect]
     Active Substance: METHOTREXATE
     Indication: DIFFUSE LARGE B-CELL LYMPHOMA
     Dosage: 2400 MG, CYCLIC
     Route: 041
     Dates: start: 20200916, end: 20210413
  11. AZILVA [Concomitant]
     Active Substance: AZILSARTAN KAMEDOXOMIL
  12. ARTIST [Concomitant]
     Active Substance: CARVEDILOL
  13. BAYASPIRIN [Concomitant]
     Active Substance: ASPIRIN

REACTIONS (2)
  - Acute kidney injury [Fatal]
  - Myelosuppression [Fatal]

NARRATIVE: CASE EVENT DATE: 20210413
